FAERS Safety Report 10607403 (Version 4)
Quarter: 2015Q1

REPORT INFORMATION
  Report Type: Spontaneous
  Country: US (occurrence: US)
  Receive Date: 20141125
  Receipt Date: 20150223
  Transmission Date: 20150720
  Serious: Yes (Hospitalization)
  Sender: FDA-Public Use
  Company Number: US-PFIZER INC-2014319647

PATIENT
  Age: 65 Year
  Sex: Male
  Weight: 100 kg

DRUGS (4)
  1. SUTENT [Suspect]
     Active Substance: SUNITINIB MALATE
     Indication: RENAL CANCER METASTATIC
     Dosage: 37.5 MG, CYCLIC (4WEEKS ON 2WEEKS OFF)
     Route: 048
     Dates: start: 201409, end: 20141025
  2. LIPITOR [Concomitant]
     Active Substance: ATORVASTATIN CALCIUM
     Dosage: UNK
  3. PLAVIX [Concomitant]
     Active Substance: CLOPIDOGREL BISULFATE
     Dosage: UNK
  4. METFORMIN [Concomitant]
     Active Substance: METFORMIN HYDROCHLORIDE
     Dosage: UNK

REACTIONS (7)
  - Chromaturia [Unknown]
  - Renal failure [Recovered/Resolved]
  - Hepatic failure [Recovered/Resolved]
  - Abdominal pain upper [Unknown]
  - Pain [Unknown]
  - Liver injury [Unknown]
  - Enzyme abnormality [Unknown]

NARRATIVE: CASE EVENT DATE: 20141025
